FAERS Safety Report 6997784-5 (Version None)
Quarter: 2010Q3

REPORT INFORMATION
  Report Type: 
  Country: None (occurrence: None)
  Receive Date: 20100920
  Receipt Date: 20100910
  Transmission Date: 20110219
  Serious: Yes (Hospitalization)
  Sender: FDA-Public Use
  Company Number: US-BIOGENIDEC-2010BI031259

PATIENT
  Age: 44 Year
  Sex: Female
  Weight: 84 kg

DRUGS (2)
  1. TYSABRI [Suspect]
     Indication: MULTIPLE SCLEROSIS
     Route: 042
     Dates: start: 20070723, end: 20080121
  2. TYSABRI [Suspect]
     Route: 042
     Dates: start: 20080513, end: 20081216

REACTIONS (5)
  - GAIT DISTURBANCE [None]
  - MULTIPLE SCLEROSIS RELAPSE [None]
  - MUSCULAR WEAKNESS [None]
  - THROMBOSIS [None]
  - UTERINE LEIOMYOMA [None]
